FAERS Safety Report 5984196-6 (Version None)
Quarter: 2008Q4

REPORT INFORMATION
  Report Type: 
  Country: None (occurrence: None)
  Receive Date: 20081208
  Receipt Date: 20081204
  Transmission Date: 20090506
  Serious: Yes (Other)
  Sender: FDA-Public Use
  Company Number: GB-ASTRAZENECA-2008GB02269

PATIENT
  Age: 78 Year
  Sex: Female

DRUGS (5)
  1. ATENOLOL [Suspect]
     Indication: HYPERTENSION
     Dosage: 25MG
     Route: 048
     Dates: start: 20080701, end: 20081001
  2. CALCICHEW [Concomitant]
     Route: 048
  3. FOSAMAX [Concomitant]
     Dosage: 70MG
     Route: 048
  4. FYBOGEL [Concomitant]
     Dosage: 3.5MG
     Route: 048
  5. ZANIDIP [Concomitant]
     Dosage: 10MG
     Route: 048

REACTIONS (1)
  - DRUG ERUPTION [None]
